FAERS Safety Report 10499659 (Version 1)
Quarter: 2014Q4

REPORT INFORMATION
  Report Type: Spontaneous
  Country: US (occurrence: US)
  Receive Date: 20141006
  Receipt Date: 20141006
  Transmission Date: 20150528
  Serious: No
  Sender: FDA-Public Use
  Company Number: US-AMGEN INC.-USASP2014066753

PATIENT
  Age: 63 Year
  Sex: Female

DRUGS (4)
  1. LEVOTHYROXINE [Concomitant]
     Active Substance: LEVOTHYROXINE
     Dosage: UNK UNK, QD
  2. DIOVAN [Concomitant]
     Active Substance: VALSARTAN
     Dosage: 80 MG, QD
  3. PROLIA [Suspect]
     Active Substance: DENOSUMAB
     Indication: OSTEOPOROSIS POSTMENOPAUSAL
     Dosage: 60 MG, Q6MO
     Route: 065
     Dates: start: 20140723
  4. TOPROL XL [Concomitant]
     Active Substance: METOPROLOL SUCCINATE
     Dosage: 25 MG, QD

REACTIONS (6)
  - Bone pain [Recovering/Resolving]
  - Muscle spasms [Unknown]
  - Back pain [Recovered/Resolved]
  - Myalgia [Recovering/Resolving]
  - Arthralgia [Recovering/Resolving]
  - Spinal pain [Recovered/Resolved]

NARRATIVE: CASE EVENT DATE: 201408
